FAERS Safety Report 4865101-2 (Version None)
Quarter: 2005Q4

REPORT INFORMATION
  Report Type: 
  Country: None (occurrence: None)
  Receive Date: 20051221
  Receipt Date: 20051221
  Transmission Date: 20060501
  Serious: Yes (Other)
  Sender: FDA-Public Use
  Company Number: None

PATIENT
  Sex: Female
  Weight: 56.4 kg

DRUGS (5)
  1. RITUXAN [Suspect]
     Indication: DIFFUSE LARGE B-CELL LYMPHOMA
     Dosage: SEE IMAGE
     Route: 042
     Dates: start: 20051115
  2. CYTOXAN [Suspect]
     Dosage: SEE IMAGE
     Route: 042
     Dates: start: 20051115
  3. DOXIL [Suspect]
     Dosage: SEE IMAGE
     Route: 042
     Dates: start: 20051115, end: 20051115
  4. VINCRISTINE [Suspect]
     Dosage: SEE IMAGE
     Dates: start: 20051115
  5. PREDNISONE [Suspect]
     Dosage: SEE IMAGE
     Dates: start: 20051115

REACTIONS (1)
  - EJECTION FRACTION DECREASED [None]
